FAERS Safety Report 9791346 (Version 1)
Quarter: 2014Q1

REPORT INFORMATION
  Report Type: Spontaneous
  Country: GB (occurrence: GB)
  Receive Date: 20140101
  Receipt Date: 20140101
  Transmission Date: 20141002
  Serious: Yes (Disabling)
  Sender: FDA-Public Use
  Company Number: GB-ASTRAZENECA-2013SE93504

PATIENT
  Age: 87 Year
  Sex: Female
  Weight: 61.7 kg

DRUGS (2)
  1. ATENOLOL [Suspect]
     Route: 065
     Dates: start: 20131008
  2. BENDROFLUMETHIAZIDE [Concomitant]
     Dates: start: 20130916

REACTIONS (1)
  - Gait disturbance [Recovered/Resolved]
